FAERS Safety Report 7020219-3 (Version None)
Quarter: 2010Q3

REPORT INFORMATION
  Report Type: 
  Country: None (occurrence: None)
  Receive Date: 20100929
  Receipt Date: 20100920
  Transmission Date: 20110219
  Serious: Yes (Hospitalization, Other)
  Sender: FDA-Public Use
  Company Number: PHEH2010US02646

PATIENT
  Sex: Female

DRUGS (4)
  1. GLEEVEC [Suspect]
     Indication: CHRONIC MYELOID LEUKAEMIA (IN REMISSION)
     Dosage: 400 MG, QD
     Route: 048
  2. HEPARIN [Concomitant]
  3. COUMADIN [Concomitant]
  4. PRISTIQ [Concomitant]
     Indication: DEPRESSION
     Dosage: 10 MG DAILY

REACTIONS (18)
  - AMNESIA [None]
  - ANXIETY [None]
  - ASTHENIA [None]
  - DECREASED ACTIVITY [None]
  - ECCHYMOSIS [None]
  - FATIGUE [None]
  - HEADACHE [None]
  - JOINT INJURY [None]
  - KNEE OPERATION [None]
  - LAPAROSCOPIC SURGERY [None]
  - LETHARGY [None]
  - ORTHOPEDIC PROCEDURE [None]
  - ORTHOSTATIC HYPERTENSION [None]
  - PULMONARY EMBOLISM [None]
  - THROMBOSIS [None]
  - VITAMIN D DEFICIENCY [None]
  - WALKING AID USER [None]
  - WEIGHT INCREASED [None]
